FAERS Safety Report 5512794-2 (Version None)
Quarter: 2007Q4

REPORT INFORMATION
  Report Type: 
  Country: None (occurrence: None)
  Receive Date: 20071108
  Receipt Date: 20071105
  Transmission Date: 20080405
  Serious: Yes (Hospitalization, Other)
  Sender: FDA-Public Use
  Company Number: 6020768

PATIENT
  Age: 52 Year
  Sex: Female

DRUGS (2)
  1. BISOPROLOL FUMARATE [Suspect]
     Indication: CARDIAC FAILURE
     Dosage: 1.25 MG (1.25 MG,1 IN 1 D) ORAL
     Route: 048
  2. CARVEDILOL [Suspect]
     Indication: METASTATIC NEOPLASM
     Dosage: 3.125 MG (3.125 MG,1 IN 1 D) ; 6.25 MG (6.25 MG,1 IN 1 D) ONLY FOR 1 DAY -

REACTIONS (8)
  - BLOOD CREATINE INCREASED [None]
  - BLOOD PRESSURE DECREASED [None]
  - CARDIAC FAILURE [None]
  - CONDITION AGGRAVATED [None]
  - DRUG INTOLERANCE [None]
  - HYPOKINESIA [None]
  - MITRAL VALVE INCOMPETENCE [None]
  - THERAPY CESSATION [None]
